FAERS Safety Report 8594779-5 (Version None)
Quarter: 2012Q3

REPORT INFORMATION
  Report Type: 
  Country: None (occurrence: None)
  Receive Date: 20120815
  Receipt Date: 20120808
  Transmission Date: 20120928
  Serious: Yes (Other)
  Sender: FDA-Public Use
  Company Number: US-ABBOTT-10P-163-0679605-00

PATIENT
  Sex: Male
  Weight: 104.42 kg

DRUGS (14)
  1. TYLENOL [Concomitant]
     Indication: PAIN
     Dosage: 4 TABLETS DAILY
  2. SIMVASTATIN [Concomitant]
     Indication: PRODUCT USED FOR UNKNOWN INDICATION
     Dosage: 40 MG DAILY
  3. FOLIC ACID [Concomitant]
     Indication: SUPPLEMENTATION THERAPY
     Dosage: 1 MG DAILY
  4. FISH OIL [Concomitant]
     Indication: SUPPLEMENTATION THERAPY
  5. CALCIUM [Concomitant]
     Indication: SUPPLEMENTATION THERAPY
     Dosage: DAILY
  6. ASPIRIN [Concomitant]
     Indication: PRODUCT USED FOR UNKNOWN INDICATION
  7. VITAMIN D [Concomitant]
     Indication: VITAMIN SUPPLEMENTATION
     Dosage: DAILY
  8. VITAMIN B-12 [Concomitant]
     Indication: PRODUCT USED FOR UNKNOWN INDICATION
     Dosage: DAILY
  9. HUMIRA [Suspect]
     Indication: RHEUMATOID ARTHRITIS
     Route: 058
     Dates: start: 20050101, end: 20110721
  10. VITAMIN B COMPLEX CAP [Concomitant]
     Indication: VITAMIN SUPPLEMENTATION
  11. METHOTREXATE [Concomitant]
     Indication: RHEUMATOID ARTHRITIS
     Route: 048
  12. PREDNISONE TAB [Concomitant]
     Indication: RHEUMATOID ARTHRITIS
     Dosage: 3 MG DAILY
     Route: 048
  13. ZOCOR [Concomitant]
     Indication: BLOOD CHOLESTEROL INCREASED
  14. FLUOXETINE HCL [Concomitant]
     Indication: PRODUCT USED FOR UNKNOWN INDICATION
     Dosage: 80 MG DAILY

REACTIONS (18)
  - FOOT DEFORMITY [None]
  - FATIGUE [None]
  - DIARRHOEA [None]
  - GASTRIC PH DECREASED [None]
  - PNEUMONIA [None]
  - ABDOMINAL PAIN [None]
  - MICTURITION URGENCY [None]
  - CHOLELITHIASIS [None]
  - RHEUMATOID FACTOR INCREASED [None]
  - DEFAECATION URGENCY [None]
  - VOMITING [None]
  - HYPERTENSION [None]
  - MUSCULAR WEAKNESS [None]
  - SINUSITIS [None]
  - NAUSEA [None]
  - FREQUENT BOWEL MOVEMENTS [None]
  - RENAL CYST [None]
  - UPPER LIMB FRACTURE [None]
